FAERS Safety Report 17300721 (Version 1)
Quarter: 2020Q3

REPORT INFORMATION
  Report Type: Spontaneous
  Country: US (occurrence: US)
  Receive Date: 20200122
  Receipt Date: 20200122
  Transmission Date: 20201105
  Serious: No
  Sender: FDA-Public Use
  Company Number: US-ALLERGAN-1952572US

PATIENT
  Age: 67 Year
  Sex: Female
  Weight: 67.12 kg

DRUGS (6)
  1. PANTOPRAZOLE [Concomitant]
     Active Substance: PANTOPRAZOLE
     Indication: PROPHYLAXIS
     Dosage: 40 MG, QAM
  2. RESTASIS [Suspect]
     Active Substance: CYCLOSPORINE
     Indication: SJOGREN^S SYNDROME
     Dosage: UNK, BID
  3. XELJANZ [Suspect]
     Active Substance: TOFACITINIB CITRATE
     Indication: RHEUMATOID ARTHRITIS
     Dosage: 5 MG, BID
     Dates: end: 20191019
  4. SALSALATE. [Suspect]
     Active Substance: SALSALATE
     Indication: RHEUMATOID ARTHRITIS
     Dosage: 750 MG, BID
  5. GOLYTELY [Suspect]
     Active Substance: POLYETHYLENE GLYCOL 3350\POTASSIUM CHLORIDE\SODIUM BICARBONATE\SODIUM CHLORIDE\SODIUM SULFATE ANHYDROUS
     Dosage: UNK
     Dates: start: 20191019
  6. FLECAINIDE [Concomitant]
     Active Substance: FLECAINIDE
     Indication: CARDIAC DISORDER
     Dosage: 75 MG, BID
     Dates: start: 2017

REACTIONS (9)
  - Tremor [Recovering/Resolving]
  - Skin atrophy [Not Recovered/Not Resolved]
  - Hyperkeratosis [Not Recovered/Not Resolved]
  - Off label use [Unknown]
  - Muscle spasms [Not Recovered/Not Resolved]
  - Malaise [Recovering/Resolving]
  - Flatulence [Not Recovered/Not Resolved]
  - Constipation [Not Recovered/Not Resolved]
  - Abdominal distension [Not Recovered/Not Resolved]

NARRATIVE: CASE EVENT DATE: 20191001
